FAERS Safety Report 12133431 (Version 1)
Quarter: 2016Q1

REPORT INFORMATION
  Report Type: Spontaneous
  Country: CN (occurrence: CN)
  Receive Date: 20160301
  Receipt Date: 20160301
  Transmission Date: 20160526
  Serious: Yes (Hospitalization)
  Sender: FDA-Public Use
  Company Number: CN-ASTRAZENECA-2016SE21488

PATIENT
  Sex: Male
  Weight: 60 kg

DRUGS (7)
  1. TICAGRELOR [Suspect]
     Active Substance: TICAGRELOR
     Indication: CEREBROVASCULAR ACCIDENT
     Route: 048
     Dates: start: 20150310, end: 20150417
  2. SIMVASTATIN. [Suspect]
     Active Substance: SIMVASTATIN
     Indication: DRUG THERAPY
     Route: 048
     Dates: start: 20150415, end: 20150417
  3. INDAPAMIDE. [Concomitant]
     Active Substance: INDAPAMIDE
     Indication: BLOOD PRESSURE ABNORMAL
  4. CITICOLINE [Concomitant]
     Active Substance: CITICOLINE
     Dates: start: 20150415
  5. NIFEDIPINE. [Concomitant]
     Active Substance: NIFEDIPINE
     Indication: BLOOD PRESSURE ABNORMAL
  6. TICAGRELOR [Suspect]
     Active Substance: TICAGRELOR
     Indication: DRUG THERAPY
     Route: 048
     Dates: start: 20150310, end: 20150417
  7. CILOSTAZOL. [Concomitant]
     Active Substance: CILOSTAZOL

REACTIONS (1)
  - Hepatic enzyme increased [Recovered/Resolved]
